FAERS Safety Report 8799398 (Version 1)
Quarter: 2012Q4

REPORT INFORMATION
  Report Type: 
  Country: PH (occurrence: PH)
  Receive Date: 20120920
  Receipt Date: 20120920
  Transmission Date: 20130627
  Serious: Yes (Death)
  Sender: FDA-Public Use
  Company Number: PH-BAXTER-2012BAX017047

PATIENT
  Sex: Female

DRUGS (2)
  1. DIANEAL PD2 WITH 2.5% DEXTROSE [Suspect]
     Indication: CONTINUOUS AMBULATORY PERITONEAL DIALYSIS
     Route: 033
     Dates: start: 20120217
  2. DIANEAL PD2 WITH 4.25% DEXTROSE [Suspect]
     Indication: CONTINUOUS AMBULATORY PERITONEAL DIALYSIS
     Dates: start: 20120217

REACTIONS (5)
  - Cardiopulmonary failure [Fatal]
  - Pneumonia [Fatal]
  - Renal failure chronic [Fatal]
  - Cerebrovascular accident [Fatal]
  - Hypertensive heart disease [Fatal]
